FAERS Safety Report 24342179 (Version 1)
Quarter: 2024Q3

REPORT INFORMATION
  Report Type: Other
  Country: FI (occurrence: FI)
  Receive Date: 20240920
  Receipt Date: 20240920
  Transmission Date: 20241017
  Serious: Yes (Other)
  Sender: STRIDES
  Company Number: FI-TEVA-VS-3175568

PATIENT
  Age: 87 Year
  Sex: Female

DRUGS (1)
  1. GABAPENTIN [Suspect]
     Active Substance: GABAPENTIN
     Indication: Neuralgia
     Dosage: RATIOPHARM, CAPSULE
     Route: 065
     Dates: start: 202312, end: 202312

REACTIONS (8)
  - Loss of consciousness [Recovered/Resolved]
  - Fall [Recovered/Resolved]
  - Eye pain [Unknown]
  - Eye disorder [Unknown]
  - Headache [Unknown]
  - Alopecia [Recovered/Resolved]
  - Vomiting [Recovered/Resolved]
  - Dizziness [Not Recovered/Not Resolved]

NARRATIVE: CASE EVENT DATE: 20231201
